FAERS Safety Report 9287041 (Version 1)
Quarter: 2013Q2

REPORT INFORMATION
  Report Type: Spontaneous
  Country: US (occurrence: None)
  Receive Date: 20130508
  Receipt Date: 20130508
  Transmission Date: 20140414
  Serious: No
  Sender: FDA-Public Use
  Company Number: 201304048

PATIENT
  Age: 61 Year
  Sex: Male

DRUGS (1)
  1. XIAFLEX [Suspect]
     Indication: DUPUYTREN^S CONTRACTURE
     Dosage: 1 IN 1 D, INTRALESIONAL
     Dates: start: 20130401, end: 20130401

REACTIONS (8)
  - Local swelling [None]
  - Pain in extremity [None]
  - Blister [None]
  - Skin exfoliation [None]
  - Cyanosis [None]
  - Skin discolouration [None]
  - Carpal tunnel syndrome [None]
  - Post procedural complication [None]
